FAERS Safety Report 7509244-3 (Version None)
Quarter: 2011Q2

REPORT INFORMATION
  Report Type: 
  Country: None (occurrence: None)
  Receive Date: 20110527
  Receipt Date: 20110519
  Transmission Date: 20111010
  Serious: Yes (Hospitalization)
  Sender: FDA-Public Use
  Company Number: KR-ROCHE-707934

PATIENT
  Sex: Female
  Weight: 54 kg

DRUGS (21)
  1. DOCETAXEL [Suspect]
     Route: 042
     Dates: start: 20100430, end: 20100728
  2. DIAZEPAM [Concomitant]
     Dates: start: 20100430
  3. REBAMIPIDE [Concomitant]
     Dates: start: 20100527
  4. DEXAMETHASONE SODIUM PHOSPHATE [Concomitant]
     Dates: start: 20100430, end: 20100630
  5. RAMOSETRON [Concomitant]
     Dates: start: 20100430, end: 20100630
  6. AVANDAMET [Concomitant]
     Dates: start: 20070618
  7. BENZYDAMINE HCL [Concomitant]
     Dosage: DOSE: GARGLE
     Dates: start: 20100416
  8. ULTRACET [Concomitant]
     Dates: start: 20100430, end: 20100526
  9. PERTUZUMAB [Suspect]
     Dosage: LOADING DOSE
     Route: 042
     Dates: start: 20100429, end: 20100429
  10. FENOFIBRATE [Concomitant]
     Dates: start: 20100111
  11. POVIDONE IODINE [Concomitant]
     Dosage: DOSE: GARGLE
     Dates: start: 20100430
  12. CHLORPHENIRAMINE MALEATE [Concomitant]
     Dates: start: 20100429, end: 20100630
  13. CIMETIDINE [Concomitant]
     Dates: start: 20100430, end: 20100630
  14. MAGNESIUM OXIDE [Concomitant]
     Dates: start: 20100527, end: 20100606
  15. RABEPRAZOLE SODIUM [Concomitant]
     Dates: start: 20100527
  16. TRASTUZUMAB [Suspect]
     Dosage: MAINTAINENCE DOSE:6 MG/KG.FORM: INFUSION, LAST DOSE PRIOR TO SAE:1JUL2010 (3 CYC), TEMP INTERRUPTED
     Route: 042
     Dates: start: 20100520, end: 20100728
  17. METOCLOPRAMIDE HCL [Concomitant]
     Dates: start: 20100430, end: 20100630
  18. TRASTUZUMAB [Suspect]
     Dosage: LOADING DOSE: 8 MG/KG AS PER PROTOCOL.
     Route: 042
     Dates: start: 20100430, end: 20100430
  19. PERTUZUMAB [Suspect]
     Dosage: 20MAY2010-2 CYC, LAST DOSE PRIOR TO SAE:20JUN2010 (3 CYC), FORM: INFUSION/VIAL, TEMP INTERRUPTED
     Route: 042
     Dates: start: 20100520, end: 20100728
  20. DICAMAX [Concomitant]
     Dates: start: 20080731
  21. ZOLPIDEM [Concomitant]
     Dates: start: 20100430

REACTIONS (2)
  - PNEUMONIA ASPIRATION [None]
  - HAEMOPTYSIS [None]
